FAERS Safety Report 17040701 (Version 1)
Quarter: 2019Q4

REPORT INFORMATION
  Report Type: Report from Study
  Country: None (occurrence: US)
  Receive Date: 20191117
  Receipt Date: 20191117
  Transmission Date: 20200122
  Serious: Yes (Other)
  Sender: FDA-Public Use
  Company Number: US-ABBVIE-19K-163-3001634-00

PATIENT
  Age: 65 Year
  Sex: Female

DRUGS (1)
  1. MAVYRET [Suspect]
     Active Substance: GLECAPREVIR\PIBRENTASVIR
     Indication: PRODUCT USED FOR UNKNOWN INDICATION
     Route: 048
     Dates: start: 20190507, end: 20190729

REACTIONS (2)
  - Fall [Recovering/Resolving]
  - Upper limb fracture [Recovering/Resolving]

NARRATIVE: CASE EVENT DATE: 201910
